FAERS Safety Report 15640195 (Version 1)
Quarter: 2018Q4

REPORT INFORMATION
  Report Type: Spontaneous
  Country: US (occurrence: US)
  Receive Date: 20181120
  Receipt Date: 20181120
  Transmission Date: 20190205
  Serious: No
  Sender: FDA-Public Use
  Company Number: US-PFIZER INC-2018465153

PATIENT
  Age: 61 Year
  Sex: Male
  Weight: 98.88 kg

DRUGS (2)
  1. LYRICA [Suspect]
     Active Substance: PREGABALIN
     Indication: ARTHRITIS
     Dosage: 75 MG, 1X/DAY
     Route: 048
     Dates: start: 20180918
  2. LYRICA [Suspect]
     Active Substance: PREGABALIN
     Indication: MUSCULOSKELETAL DISCOMFORT
     Dosage: 75 MG, 2X/DAY
     Route: 048
     Dates: start: 2018

REACTIONS (1)
  - Drug effective for unapproved indication [Unknown]

NARRATIVE: CASE EVENT DATE: 20180918
